FAERS Safety Report 8953022 (Version 2)
Quarter: 2013Q1

REPORT INFORMATION
  Report Type: Report from Study
  Country: AU (occurrence: AU)
  Receive Date: 20121205
  Receipt Date: 20130122
  Transmission Date: 20140127
  Serious: Yes (Other)
  Sender: FDA-Public Use
  Company Number: AU-ROCHE-1160915

PATIENT
  Age: 71 Year
  Sex: Female

DRUGS (1)
  1. ACTEMRA [Suspect]
     Indication: RHEUMATOID ARTHRITIS
     Route: 042
     Dates: start: 20110720

REACTIONS (5)
  - Fall [Recovering/Resolving]
  - Cystitis [Recovering/Resolving]
  - Headache [Unknown]
  - Tremor [Unknown]
  - Mass [Unknown]
